FAERS Safety Report 5156501-4 (Version None)
Quarter: 2006Q4

REPORT INFORMATION
  Report Type: 
  Country: None (occurrence: None)
  Receive Date: 20061113
  Receipt Date: 20061028
  Transmission Date: 20070319
  Serious: Yes (Disabling, Other)
  Sender: FDA-Public Use
  Company Number: 2006002584

PATIENT
  Age: 57 Year
  Sex: Female
  Weight: 57.6068 kg

DRUGS (7)
  1. DEPO-MEDROL [Suspect]
     Indication: SCIATICA
     Dosage: 80 MG (80 MG, 1 IN 1 D), EPIDURAL
     Route: 008
     Dates: start: 20000126
  2. CELEBREX [Suspect]
     Indication: PAIN
  3. NEURONTIN [Suspect]
     Indication: SCIATICA
     Dosage: 900 MG (300 MG, 3 IN 1 D)
  4. BEXTRA [Suspect]
     Indication: PAIN
  5. LYRICA [Suspect]
  6. PREMARIN [Concomitant]
  7. ZOCOR [Concomitant]

REACTIONS (25)
  - AGITATION [None]
  - ANXIETY [None]
  - ARACHNOID CYST [None]
  - ARACHNOIDITIS [None]
  - BLOOD CHOLESTEROL INCREASED [None]
  - BLOOD PRESSURE INCREASED [None]
  - CONFUSIONAL STATE [None]
  - CYSTITIS [None]
  - DEPRESSION [None]
  - DRUG INEFFECTIVE [None]
  - FLUID RETENTION [None]
  - HEADACHE [None]
  - ILL-DEFINED DISORDER [None]
  - IMPAIRED WORK ABILITY [None]
  - INCORRECT ROUTE OF DRUG ADMINISTRATION [None]
  - INSOMNIA [None]
  - NASAL DISORDER [None]
  - OFF LABEL USE [None]
  - ORAL INTAKE REDUCED [None]
  - PARALYSIS [None]
  - PERSONALITY CHANGE [None]
  - POSTURE ABNORMAL [None]
  - THROMBOSIS [None]
  - TREATMENT NONCOMPLIANCE [None]
  - WEIGHT INCREASED [None]
